FAERS Safety Report 24310129 (Version 2)
Quarter: 2024Q4

REPORT INFORMATION
  Report Type: Spontaneous
  Country: PT (occurrence: PT)
  Receive Date: 20240912
  Receipt Date: 20241217
  Transmission Date: 20250114
  Serious: Yes (Hospitalization, Disabling, Other)
  Sender: ROCHE
  Company Number: None

PATIENT
  Age: 84 Year
  Sex: Female
  Weight: 72 kg

DRUGS (11)
  1. ERIVEDGE [Suspect]
     Active Substance: VISMODEGIB
     Indication: Basal cell carcinoma
     Dosage: 150MG ONCE A DAY
     Route: 050
     Dates: start: 20240206, end: 20240722
  2. PRAVASTATIN SODIUM [Concomitant]
     Active Substance: PRAVASTATIN SODIUM
  3. LISINOPRIL [Concomitant]
     Active Substance: LISINOPRIL
  4. Azilsartan medoxomilo + Clorotalidona [Concomitant]
  5. NEBIVOLOL [Concomitant]
     Active Substance: NEBIVOLOL
  6. OMEPRAZOLE [Concomitant]
     Active Substance: OMEPRAZOLE
  7. PREGABALIN [Concomitant]
     Active Substance: PREGABALIN
  8. ASPIRIN [Concomitant]
     Active Substance: ASPIRIN
  9. ALPRAZOLAM [Concomitant]
     Active Substance: ALPRAZOLAM
  10. MIRTAZAPINE [Concomitant]
     Active Substance: MIRTAZAPINE
  11. METFORMIN [Concomitant]
     Active Substance: METFORMIN HYDROCHLORIDE

REACTIONS (6)
  - Dysgeusia [Recovered/Resolved]
  - Cholecystitis acute [Recovered/Resolved]
  - Pancreatitis acute [Recovered/Resolved]
  - Abdominal pain upper [Recovered/Resolved]
  - Arthralgia [Recovered/Resolved]
  - Pyrexia [Recovered/Resolved]

NARRATIVE: CASE EVENT DATE: 20240318
